FAERS Safety Report 7036322-8 (Version None)
Quarter: 2010Q4

REPORT INFORMATION
  Report Type: 
  Country: None (occurrence: None)
  Receive Date: 20101008
  Receipt Date: 20101001
  Transmission Date: 20110411
  Serious: Yes (Other)
  Sender: FDA-Public Use
  Company Number: US-AMGEN-QUU437088

PATIENT
  Sex: Female
  Weight: 113.5 kg

DRUGS (13)
  1. NPLATE [Suspect]
     Indication: IDIOPATHIC THROMBOCYTOPENIC PURPURA
     Route: 058
     Dates: start: 20100210
  2. CELEXA [Concomitant]
     Route: 048
  3. LIPITOR [Concomitant]
     Route: 048
  4. GLUCOSAMINE W/CHONDROITIN SULFATES [Concomitant]
     Route: 048
     Dates: start: 20070101
  5. LOTENSIN [Concomitant]
     Route: 048
  6. SYNTHROID [Concomitant]
     Route: 048
  7. ALPRAZOLAM [Concomitant]
     Route: 048
     Dates: start: 20080101
  8. PREDNISONE [Concomitant]
     Route: 048
     Dates: start: 20100913
  9. MULTI-VITAMINS [Concomitant]
     Route: 048
  10. LOVAZA [Concomitant]
     Route: 048
     Dates: start: 20070101
  11. VITAMIN E [Concomitant]
     Route: 048
  12. CALCIUM [Concomitant]
  13. CALCIUM [Concomitant]

REACTIONS (3)
  - EPISTAXIS [None]
  - PLATELET COUNT ABNORMAL [None]
  - THERAPEUTIC RESPONSE DECREASED [None]
